FAERS Safety Report 26037351 (Version 1)
Quarter: 2025Q4

REPORT INFORMATION
  Report Type: Spontaneous
  Country: US (occurrence: US)
  Receive Date: 20251112
  Receipt Date: 20251112
  Transmission Date: 20260118
  Serious: No
  Sender: PHARMING GROUP
  Company Number: US-PHARMING-PHAUS2025001569

PATIENT

DRUGS (2)
  1. RUCONEST [Suspect]
     Active Substance: CONESTAT ALFA
     Indication: Hereditary angioedema
     Dosage: 3630 IU, PRN
     Route: 042
     Dates: start: 20191112
  2. ERGOCALCIFEROL [Concomitant]
     Active Substance: ERGOCALCIFEROL
     Indication: Product used for unknown indication

REACTIONS (1)
  - Nasopharyngitis [Unknown]
